FAERS Safety Report 4870668-4 (Version None)
Quarter: 2006Q1

REPORT INFORMATION
  Report Type: 
  Country: None (occurrence: None)
  Receive Date: 20060103
  Receipt Date: 20051221
  Transmission Date: 20060701
  Serious: Yes (Hospitalization)
  Sender: FDA-Public Use
  Company Number: CA-JNJFOC-20051205858

PATIENT
  Sex: Female
  Weight: 67 kg

DRUGS (5)
  1. REMINYL [Suspect]
     Indication: DEMENTIA ALZHEIMER'S TYPE
  2. METOPROLOL [Concomitant]
     Indication: HYPERTENSION
     Route: 048
  3. ASPIRIN [Concomitant]
  4. ALPRAZOLAM [Concomitant]
     Indication: AFFECTIVE DISORDER
     Route: 048
  5. VITAMIN B-12 [Concomitant]
     Indication: VITAMIN B12 DEFICIENCY

REACTIONS (6)
  - BRADYCARDIA [None]
  - NAUSEA [None]
  - OVERDOSE [None]
  - SINUS ARRHYTHMIA [None]
  - SYNCOPE [None]
  - VOMITING [None]
